FAERS Safety Report 8997360 (Version 1)
Quarter: 2013Q1

REPORT INFORMATION
  Report Type: Spontaneous
  Country: US (occurrence: US)
  Receive Date: 20130104
  Receipt Date: 20130104
  Transmission Date: 20140127
  Serious: Yes (Other)
  Sender: FDA-Public Use
  Company Number: US-ASTELLAS-2012US012915

PATIENT
  Age: 69 Year
  Sex: Male

DRUGS (2)
  1. XTANDI [Suspect]
     Indication: PROSTATE CANCER
     Dosage: 160 MG, UID/QD
     Route: 048
     Dates: start: 20121129
  2. XTANDI [Suspect]
     Dosage: 80 MG, UID/QD
     Route: 048

REACTIONS (3)
  - Liver function test abnormal [Unknown]
  - Local swelling [Unknown]
  - Anxiety [Unknown]
